FAERS Safety Report 13473514 (Version 2)
Quarter: 2017Q3

REPORT INFORMATION
  Report Type: Spontaneous
  Country: US (occurrence: US)
  Receive Date: 20170424
  Receipt Date: 20170721
  Transmission Date: 20171127
  Serious: No
  Sender: FDA-Public Use
  Company Number: US-BRACCO-014547

PATIENT

DRUGS (1)
  1. BARIUM SULFATE [Suspect]
     Active Substance: BARIUM SULFATE
     Indication: BARIUM DOUBLE CONTRAST
     Route: 054

REACTIONS (2)
  - No adverse event [Unknown]
  - Product physical consistency issue [Unknown]
